FAERS Safety Report 4963340-3 (Version None)
Quarter: 2006Q2

REPORT INFORMATION
  Report Type: 
  Country: None (occurrence: None)
  Receive Date: 20060404
  Receipt Date: 20060404
  Transmission Date: 20061013
  Serious: Yes (Hospitalization)
  Sender: FDA-Public Use
  Company Number: None

PATIENT
  Age: 65 Year
  Sex: Male
  Weight: 92.9874 kg

DRUGS (1)
  1. TERAZOSIN HCL [Suspect]
     Indication: BENIGN PROSTATIC HYPERPLASIA
     Dosage: 4 MG PO QD
     Route: 048

REACTIONS (2)
  - DIZZINESS [None]
  - HYPOTENSION [None]
